FAERS Safety Report 20511428 (Version 2)
Quarter: 2022Q1

REPORT INFORMATION
  Report Type: Spontaneous
  Country: PL (occurrence: PL)
  Receive Date: 20220224
  Receipt Date: 20220307
  Transmission Date: 20220423
  Serious: Yes (Other)
  Sender: FDA-Public Use
  Company Number: PL-AMGEN-POLSP2022020155

PATIENT
  Age: 70 Year
  Sex: Male

DRUGS (2)
  1. BEVACIZUMAB [Suspect]
     Active Substance: BEVACIZUMAB
     Indication: Acanthamoeba keratitis
     Dosage: 5 MILLIGRAM/ML, FIVE TIMES A DAY, FOR 14 DAYS
  2. PROPAMIDINE [Concomitant]
     Active Substance: PROPAMIDINE
     Dosage: 2X DAILY

REACTIONS (4)
  - Iris adhesions [Recovering/Resolving]
  - Corneal scar [Recovering/Resolving]
  - Cataract [Recovering/Resolving]
  - Off label use [Unknown]
